FAERS Safety Report 23497707 (Version 1)
Quarter: 2024Q1

REPORT INFORMATION
  Report Type: Spontaneous
  Country: US (occurrence: None)
  Receive Date: 20240207
  Receipt Date: 20240207
  Transmission Date: 20240410
  Serious: No
  Sender: FDA-Public Use
  Company Number: US-ROCHE-3385445

PATIENT
  Age: 56 Year
  Sex: Male
  Weight: 95.34 kg

DRUGS (7)
  1. XOLAIR [Suspect]
     Active Substance: OMALIZUMAB
     Indication: Asthma
     Dosage: ONE 150MG INJECTION IN EACH ARM (300MG) EVERY 2 WEEKS
     Route: 058
     Dates: start: 2021
  2. XOLAIR [Suspect]
     Active Substance: OMALIZUMAB
  3. XOLAIR [Suspect]
     Active Substance: OMALIZUMAB
     Route: 058
     Dates: start: 201911
  4. XOLAIR [Suspect]
     Active Substance: OMALIZUMAB
  5. XOLAIR [Suspect]
     Active Substance: OMALIZUMAB
     Route: 058
     Dates: start: 202002
  6. XOLAIR [Suspect]
     Active Substance: OMALIZUMAB
  7. DIOVAN [Concomitant]
     Active Substance: VALSARTAN
     Indication: Hypertension

REACTIONS (9)
  - Exposure via skin contact [Unknown]
  - Underdose [Unknown]
  - Product communication issue [Unknown]
  - Product complaint [Unknown]
  - Syringe issue [Unknown]
  - No adverse event [Unknown]
  - Product container seal issue [Unknown]
  - Syringe issue [Unknown]
  - Device defective [Unknown]

NARRATIVE: CASE EVENT DATE: 20230707
